FAERS Safety Report 17505685 (Version 3)
Quarter: 2020Q4

REPORT INFORMATION
  Report Type: Report from Study
  Country: None (occurrence: US)
  Receive Date: 20200306
  Receipt Date: 20201026
  Transmission Date: 20210113
  Serious: Yes (Other)
  Sender: FDA-Public Use
  Company Number: US-ABBVIE-19K-163-2945495-00

PATIENT
  Age: 73 Year
  Sex: Male
  Weight: 49.94 kg

DRUGS (4)
  1. HUMIRA [Suspect]
     Active Substance: ADALIMUMAB
     Indication: PSORIASIS
  2. CEFALEXIN [Concomitant]
     Active Substance: CEPHALEXIN
     Indication: TENDON RUPTURE
  3. INSULIN [Concomitant]
     Active Substance: INSULIN NOS
     Indication: DIABETES MELLITUS
  4. HUMIRA [Suspect]
     Active Substance: ADALIMUMAB
     Indication: PSORIATIC ARTHROPATHY
     Route: 058
     Dates: start: 2015

REACTIONS (6)
  - Rheumatoid arthritis [Unknown]
  - Poor peripheral circulation [Recovered/Resolved]
  - Mobility decreased [Not Recovered/Not Resolved]
  - Intentional self-injury [Recovered/Resolved]
  - Basosquamous carcinoma of skin [Recovered/Resolved]
  - Skin disorder [Recovering/Resolving]

NARRATIVE: CASE EVENT DATE: 202001
